FAERS Safety Report 9442477 (Version 4)
Quarter: 2014Q1

REPORT INFORMATION
  Report Type: Spontaneous
  Country: US (occurrence: US)
  Receive Date: 20130806
  Receipt Date: 20140124
  Transmission Date: 20141002
  Serious: Yes (Other)
  Sender: FDA-Public Use
  Company Number: US-BAYER-2013-094482

PATIENT
  Age: 48 Year
  Sex: Female
  Weight: 53.52 kg

DRUGS (3)
  1. MENOSTAR [Suspect]
     Indication: HORMONE REPLACEMENT THERAPY
     Dosage: UNK
     Route: 062
     Dates: start: 20130701
  2. MENOSTAR [Suspect]
     Indication: MENOPAUSAL SYMPTOMS
     Dosage: UNK
     Route: 062
  3. VITAMIN C [Concomitant]
     Dosage: 500 MG, QD
     Dates: start: 2012

REACTIONS (6)
  - Vaginal haemorrhage [Recovered/Resolved]
  - Abdominal pain upper [Recovered/Resolved]
  - Burning sensation [Recovered/Resolved]
  - Vaginal haemorrhage [Recovered/Resolved]
  - Product adhesion issue [None]
  - Product adhesion issue [None]
